FAERS Safety Report 14373427 (Version 1)
Quarter: 2018Q1

REPORT INFORMATION
  Report Type: Spontaneous
  Country: US (occurrence: US)
  Receive Date: 20180109
  Receipt Date: 20180109
  Transmission Date: 20180509
  Serious: No
  Sender: FDA-Public Use
  Company Number: None

PATIENT
  Age: 52 Year
  Sex: Male

DRUGS (2)
  1. CEFAZOLIN 10 GRAMS SAGENT [Suspect]
     Active Substance: CEFAZOLIN SODIUM
     Indication: PROCEDURAL COMPLICATION
     Route: 042
     Dates: start: 20180105, end: 20180109
  2. CEFAZOLIN 1 GRAM SAGENT [Suspect]
     Active Substance: CEFAZOLIN SODIUM
     Indication: PROCEDURAL COMPLICATION
     Route: 042
     Dates: start: 20180105, end: 20180109

REACTIONS (1)
  - Retching [None]

NARRATIVE: CASE EVENT DATE: 20180106
